FAERS Safety Report 7115518-0 (Version None)
Quarter: 2010Q4

REPORT INFORMATION
  Report Type: 
  Country: None (occurrence: None)
  Receive Date: 20101122
  Receipt Date: 20100820
  Transmission Date: 20110411
  Serious: No
  Sender: FDA-Public Use
  Company Number: US-BAYER-201034176NA

PATIENT
  Age: 70 Year
  Sex: Female

DRUGS (1)
  1. CLIMARA PRO [Suspect]
     Indication: VULVOVAGINAL DRYNESS
     Route: 062
     Dates: start: 20090201

REACTIONS (1)
  - APPLICATION SITE ERYTHEMA [None]
